FAERS Safety Report 6417045-2 (Version None)
Quarter: 2009Q4

REPORT INFORMATION
  Report Type: 
  Country: None (occurrence: None)
  Receive Date: 20091026
  Receipt Date: 20091023
  Transmission Date: 20100525
  Serious: Yes (Life-Threatening)
  Sender: FDA-Public Use
  Company Number: GRT 2009-13684

PATIENT
  Sex: Female

DRUGS (1)
  1. LIDOCAINE [Suspect]
     Indication: BACK PAIN
     Dosage: 1 PATCH
     Dates: start: 20090824

REACTIONS (7)
  - CARDIO-RESPIRATORY ARREST [None]
  - DIZZINESS [None]
  - HYPERHIDROSIS [None]
  - PALLOR [None]
  - RESPIRATORY DISORDER [None]
  - TACHYCARDIA [None]
  - VISION BLURRED [None]
